FAERS Safety Report 9677610 (Version 1)
Quarter: 2013Q4

REPORT INFORMATION
  Report Type: Spontaneous
  Country: TR (occurrence: TR)
  Receive Date: 20131108
  Receipt Date: 20131108
  Transmission Date: 20140711
  Serious: Yes (Other)
  Sender: FDA-Public Use
  Company Number: TR-JNJFOC-20131101564

PATIENT
  Age: 35 Year
  Sex: Female
  Weight: 90 kg

DRUGS (3)
  1. REMICADE [Suspect]
     Indication: RHEUMATOID ARTHRITIS
     Route: 042
     Dates: start: 20110119, end: 20130104
  2. SALAZOPYRIN [Concomitant]
     Route: 065
  3. METOJECT [Concomitant]
     Route: 065

REACTIONS (1)
  - Benign muscle neoplasm [Unknown]
